FAERS Safety Report 6573470-0 (Version None)
Quarter: 2010Q1

REPORT INFORMATION
  Report Type: 
  Country: None (occurrence: None)
  Receive Date: 20100204
  Receipt Date: 20100204
  Transmission Date: 20100710
  Serious: No
  Sender: FDA-Public Use
  Company Number: None

PATIENT
  Sex: Female
  Weight: 63.5036 kg

DRUGS (1)
  1. EVISTA [Suspect]
     Indication: BONE DENSITY DECREASED
     Dosage: 60 MG 1 DAILY

REACTIONS (1)
  - MUSCLE SPASMS [None]
